FAERS Safety Report 20768237 (Version 1)
Quarter: 2022Q2

REPORT INFORMATION
  Report Type: Spontaneous
  Country: US (occurrence: US)
  Receive Date: 20220429
  Receipt Date: 20220429
  Transmission Date: 20220721
  Serious: Yes (Other)
  Sender: FDA-Public Use
  Company Number: US-CADILA HEALTHCARE LIMITED-US-ZYDUS-077253

PATIENT

DRUGS (3)
  1. METHOTREXATE [Suspect]
     Active Substance: METHOTREXATE
     Indication: Idiopathic pulmonary fibrosis
     Dosage: 10 MILLIGRAM WEEKLY
     Route: 065
  2. DEXAMETHASONE [Suspect]
     Active Substance: DEXAMETHASONE
     Indication: Macular oedema
     Dosage: UNK
     Route: 065
  3. PREDNISONE [Suspect]
     Active Substance: PREDNISONE
     Indication: Idiopathic pulmonary fibrosis
     Dosage: 10 MILLIGRAM, QD
     Route: 048

REACTIONS (2)
  - Impaired healing [Unknown]
  - Abiotrophia defectiva endocarditis [Unknown]
